FAERS Safety Report 24737690 (Version 1)
Quarter: 2024Q4

REPORT INFORMATION
  Report Type: Spontaneous
  Country: US (occurrence: None)
  Receive Date: 20241213
  Receipt Date: 20241213
  Transmission Date: 20250115
  Serious: No
  Sender: Public
  Company Number: None

PATIENT
  Age: 58 Year
  Sex: Female

DRUGS (8)
  1. INGREZZA [Suspect]
     Active Substance: VALBENAZINE
     Indication: Tardive dyskinesia
     Dosage: 80  MG DAILY ORAL ?
     Route: 048
  2. CAPLYTA [Concomitant]
     Active Substance: LUMATEPERONE
  3. ELIQUIS [Concomitant]
     Active Substance: APIXABAN
  4. Estradiol 8mg [Concomitant]
  5. FINASTERIDE [Concomitant]
     Active Substance: FINASTERIDE
  6. FLUOXETINE [Concomitant]
     Active Substance: FLUOXETINE HYDROCHLORIDE
  7. Megestrol Acetate 40mg [Concomitant]
  8. MEMANTINE [Concomitant]
     Active Substance: MEMANTINE

REACTIONS (1)
  - Suicidal ideation [None]

NARRATIVE: CASE EVENT DATE: 20241205
